FAERS Safety Report 6662607-0 (Version None)
Quarter: 2010Q1

REPORT INFORMATION
  Report Type: 
  Country: None (occurrence: None)
  Receive Date: 20100331
  Receipt Date: 20100324
  Transmission Date: 20100710
  Serious: Yes (Death, Other)
  Sender: FDA-Public Use
  Company Number: US-AMGEN-QUU401751

PATIENT
  Sex: Female

DRUGS (13)
  1. NPLATE [Suspect]
     Indication: IDIOPATHIC THROMBOCYTOPENIC PURPURA
     Dates: start: 20091002
  2. ADVAIR DISKUS 100/50 [Concomitant]
  3. ALBUTEROL [Concomitant]
  4. AMLODIPINE [Concomitant]
  5. MULTI-VITAMINS [Concomitant]
  6. CLARINEX [Concomitant]
  7. LORAZEPAM [Concomitant]
  8. SINGULAIR [Concomitant]
  9. SPIRIVA [Concomitant]
  10. NEXIUM [Concomitant]
  11. VITAMIN C [Concomitant]
  12. VITAMIN B-12 [Concomitant]
  13. FLUNISOLIDE [Concomitant]

REACTIONS (1)
  - DEATH [None]
